FAERS Safety Report 17681271 (Version 1)
Quarter: 2020Q2

REPORT INFORMATION
  Report Type: Spontaneous
  Country: DE (occurrence: DE)
  Receive Date: 20200417
  Receipt Date: 20200417
  Transmission Date: 20200714
  Serious: Yes (Other)
  Sender: FDA-Public Use
  Company Number: DE-MYLANLABS-2020M1038352

PATIENT
  Age: 23 Year
  Sex: Female

DRUGS (3)
  1. CHARIVA [Concomitant]
     Indication: CONTRACEPTION
     Dosage: 0,03/2MG
     Route: 048
     Dates: start: 201711
  2. ESCITALOPRAM [Suspect]
     Active Substance: ESCITALOPRAM OXALATE
     Indication: DEPRESSION
     Dosage: 15MG
     Route: 048
     Dates: start: 201806, end: 201906
  3. CIRCADIN [Concomitant]
     Active Substance: MELATONIN
     Indication: SLEEP DISORDER
     Dosage: 2MG
     Route: 048
     Dates: start: 20180711, end: 20180720

REACTIONS (1)
  - Leukopenia [Recovered/Resolved]

NARRATIVE: CASE EVENT DATE: 20180720
